FAERS Safety Report 9850200 (Version 1)
Quarter: 2014Q1

REPORT INFORMATION
  Report Type: Spontaneous
  Country: US (occurrence: None)
  Receive Date: 20140127
  Receipt Date: 20140127
  Transmission Date: 20141002
  Serious: Yes (Death, Hospitalization)
  Sender: FDA-Public Use
  Company Number: None

PATIENT
  Age: 15 Year
  Sex: Female
  Weight: 75 kg

DRUGS (1)
  1. VINCRISTINE SULFATE [Suspect]
     Dosage: ONE DOSE, 2MG ON DAY 22, OMITTED DUE TO INCREASED BILI.
     Dates: end: 20140108

REACTIONS (7)
  - Pneumonia [None]
  - Respiratory failure [None]
  - Shock [None]
  - Acute respiratory distress syndrome [None]
  - Multi-organ failure [None]
  - General physical health deterioration [None]
  - B-cell lymphoma [None]
